FAERS Safety Report 5262707-6 (Version None)
Quarter: 2007Q1

REPORT INFORMATION
  Report Type: 
  Country: None (occurrence: None)
  Receive Date: 20070312
  Receipt Date: 20070305
  Transmission Date: 20070707
  Serious: Yes (Other)
  Sender: FDA-Public Use
  Company Number: US-SANOFI-SYNTHELABO-F01200700286

PATIENT
  Sex: Female
  Weight: 70.3 kg

DRUGS (3)
  1. BEVACIZUMAB [Suspect]
     Route: 041
     Dates: start: 20070103, end: 20070103
  2. DOCETAXEL [Suspect]
     Route: 041
     Dates: start: 20070103, end: 20070103
  3. OXALIPLATIN [Suspect]
     Route: 041
     Dates: start: 20070103, end: 20070103

REACTIONS (1)
  - WOUND EVISCERATION [None]
